FAERS Safety Report 6447379-7 (Version None)
Quarter: 2009Q4

REPORT INFORMATION
  Report Type: 
  Country: None (occurrence: None)
  Receive Date: 20091119
  Receipt Date: 20091113
  Transmission Date: 20100525
  Serious: Yes (Death, Hospitalization)
  Sender: FDA-Public Use
  Company Number: JP-ELI_LILLY_AND_COMPANY-JP200910005311

PATIENT
  Sex: Male
  Weight: 74 kg

DRUGS (2)
  1. GEMZAR [Suspect]
     Indication: THYMOMA MALIGNANT
     Dosage: 1000 MG/M2, OTHER
     Route: 042
     Dates: start: 20090116, end: 20090213
  2. PREDONINE [Concomitant]
     Indication: MYASTHENIA GRAVIS
     Dosage: UNK, UNK
     Route: 048
     Dates: start: 19950801

REACTIONS (6)
  - ATRIOVENTRICULAR BLOCK COMPLETE [None]
  - DIARRHOEA [None]
  - MYASTHENIA GRAVIS [None]
  - OFF LABEL USE [None]
  - POLYMYOSITIS [None]
  - VOMITING [None]
